FAERS Safety Report 16879006 (Version 3)
Quarter: 2020Q4

REPORT INFORMATION
  Report Type: Spontaneous
  Country: AT (occurrence: AT)
  Receive Date: 20191002
  Receipt Date: 20201209
  Transmission Date: 20210113
  Serious: Yes (Life-Threatening)
  Sender: FDA-Public Use
  Company Number: AT-BEH-2019107493

PATIENT
  Age: 8 Year
  Weight: 22 kg

DRUGS (1)
  1. PRIVIGEN [Suspect]
     Active Substance: HUMAN IMMUNOGLOBULIN G
     Indication: INFECTION
     Dosage: 10 GRAM
     Route: 042
     Dates: start: 20190911, end: 20190911

REACTIONS (2)
  - Pyrexia [Unknown]
  - Anaphylactic reaction [Recovered/Resolved]

NARRATIVE: CASE EVENT DATE: 20190911
